FAERS Safety Report 6309164-6 (Version None)
Quarter: 2009Q3

REPORT INFORMATION
  Report Type: 
  Country: None (occurrence: None)
  Receive Date: 20090814
  Receipt Date: 20090522
  Transmission Date: 20100115
  Serious: No
  Sender: FDA-Public Use
  Company Number: A0785869A

PATIENT
  Sex: Male

DRUGS (1)
  1. COREG CR [Suspect]
     Indication: HYPERTENSION

REACTIONS (1)
  - VERTIGO [None]
